FAERS Safety Report 8820414 (Version 1)
Quarter: 2012Q4

REPORT INFORMATION
  Report Type: 
  Country: PR (occurrence: PR)
  Receive Date: 20121002
  Receipt Date: 20121002
  Transmission Date: 20130627
  Serious: Yes (Death, Other)
  Sender: FDA-Public Use
  Company Number: PR-BAYER-2012-100994

PATIENT
  Sex: Male

DRUGS (6)
  1. BETASERON [Suspect]
  2. AVONEX [Suspect]
  3. METHOTREXATE [Suspect]
  4. PREDNISONE [Suspect]
  5. COPAXONE [Suspect]
  6. TYSABRI [Suspect]

REACTIONS (3)
  - Death [Fatal]
  - Multiple sclerosis [None]
  - Multiple sclerosis [None]
